FAERS Safety Report 5496247-6 (Version None)
Quarter: 2007Q4

REPORT INFORMATION
  Report Type: 
  Country: None (occurrence: None)
  Receive Date: 20071025
  Receipt Date: 20070412
  Transmission Date: 20080405
  Serious: No
  Sender: FDA-Public Use
  Company Number: A0643549A

PATIENT
  Age: 76 Year
  Sex: Female

DRUGS (5)
  1. ADVAIR DISKUS 100/50 [Suspect]
     Indication: RESTRICTIVE PULMONARY DISEASE
     Dosage: 1PUFF TWICE PER DAY
     Route: 055
     Dates: start: 20070217
  2. ANTIBIOTICS [Concomitant]
  3. METOPROLOL [Concomitant]
  4. FUROSEMIDE [Concomitant]
  5. MEGACE [Concomitant]

REACTIONS (3)
  - DRUG DISPENSING ERROR [None]
  - MEDICATION RESIDUE [None]
  - ORAL MUCOSAL DISCOLOURATION [None]
